FAERS Safety Report 5344573-3 (Version None)
Quarter: 2007Q2

REPORT INFORMATION
  Report Type: 
  Country: None (occurrence: None)
  Receive Date: 20070604
  Receipt Date: 20070523
  Transmission Date: 20071010
  Serious: Yes (Other)
  Sender: FDA-Public Use
  Company Number: US-PFIZER INC-2007043216

PATIENT
  Sex: Male
  Weight: 79.4 kg

DRUGS (3)
  1. DILANTIN [Suspect]
     Indication: CONVULSION
  2. PHENOBARBITAL TAB [Concomitant]
  3. DEPAKOTE [Concomitant]

REACTIONS (3)
  - ACTIVITIES OF DAILY LIVING IMPAIRED [None]
  - CONVULSION [None]
  - GRAND MAL CONVULSION [None]
